FAERS Safety Report 6788572-3 (Version None)
Quarter: 2010Q2

REPORT INFORMATION
  Report Type: 
  Country: None (occurrence: None)
  Receive Date: 20100623
  Receipt Date: 20080516
  Transmission Date: 20101027
  Serious: No
  Sender: FDA-Public Use
  Company Number: US-PFIZER INC-2008019395

PATIENT
  Sex: Male

DRUGS (1)
  1. HALCION [Suspect]
     Indication: NIGHTMARE
     Dates: start: 19820101

REACTIONS (2)
  - DRUG INEFFECTIVE [None]
  - DRUG PRESCRIBING ERROR [None]
